FAERS Safety Report 12519382 (Version 3)
Quarter: 2017Q1

REPORT INFORMATION
  Report Type: Spontaneous
  Country: US (occurrence: US)
  Receive Date: 20160630
  Receipt Date: 20170310
  Transmission Date: 20170428
  Serious: Yes (Hospitalization)
  Sender: FDA-Public Use
  Company Number: US-PERRIGO-16US017603

PATIENT
  Age: 17 Year
  Sex: Male
  Weight: 72.6 kg

DRUGS (5)
  1. GOOD SENSE DAYTIME NIGHTTIME [Suspect]
     Active Substance: ACETAMINOPHEN\DEXTROMETHORPHAN HYDROBROMIDE\DOXYLAMINE SUCCINATE\PHENYLEPHRINE
     Indication: COUGH
     Dosage: 2 SOFT GELS AT BEDTIME
     Route: 048
     Dates: start: 201604, end: 201604
  2. GOOD SENSE DAYTIME NIGHTTIME [Suspect]
     Active Substance: ACETAMINOPHEN\DEXTROMETHORPHAN HYDROBROMIDE\DOXYLAMINE SUCCINATE\PHENYLEPHRINE
     Indication: NASOPHARYNGITIS
  3. GOOD SENSE DAYTIME NIGHTTIME [Suspect]
     Active Substance: ACETAMINOPHEN\DEXTROMETHORPHAN HYDROBROMIDE\DOXYLAMINE SUCCINATE\PHENYLEPHRINE
     Indication: COUGH
     Dosage: 2 SOFT GELS TWICE DAILY 6 HOURS APART
     Route: 048
     Dates: start: 201604, end: 201604
  4. VAPE PEN (NICOTINE) [Suspect]
     Active Substance: NICOTINE
     Indication: TOBACCO USER
     Route: 055
  5. GOOD SENSE DAYTIME NIGHTTIME [Suspect]
     Active Substance: ACETAMINOPHEN\DEXTROMETHORPHAN HYDROBROMIDE\DOXYLAMINE SUCCINATE\PHENYLEPHRINE
     Indication: NASOPHARYNGITIS

REACTIONS (4)
  - Acute kidney injury [None]
  - Hyponatraemia [None]
  - Anxiety [None]
  - Toxic epidermal necrolysis [Recovering/Resolving]

NARRATIVE: CASE EVENT DATE: 201605
